FAERS Safety Report 17970018 (Version 1)
Quarter: 2020Q3

REPORT INFORMATION
  Report Type: Spontaneous
  Country: FR (occurrence: FR)
  Receive Date: 20200701
  Receipt Date: 20200701
  Transmission Date: 20201103
  Serious: Yes (Other)
  Sender: FDA-Public Use
  Company Number: NVSC2020FR183213

PATIENT
  Age: 68 Year
  Sex: Male
  Weight: 91 kg

DRUGS (1)
  1. EUCREAS [Suspect]
     Active Substance: METFORMIN HYDROCHLORIDE\VILDAGLIPTIN
     Indication: DIABETES MELLITUS
     Dosage: 1 DF, QD
     Route: 048
     Dates: start: 20070601, end: 20180616

REACTIONS (4)
  - Oedema [Recovered/Resolved]
  - Urticaria [Recovered/Resolved]
  - Polyneuropathy [Recovered/Resolved]
  - Asthma [Recovered/Resolved]

NARRATIVE: CASE EVENT DATE: 20180616
